FAERS Safety Report 12497891 (Version 1)
Quarter: 2016Q2

REPORT INFORMATION
  Report Type: Spontaneous
  Country: US (occurrence: US)
  Receive Date: 20160625
  Receipt Date: 20160625
  Transmission Date: 20160815
  Serious: No
  Sender: FDA-Public Use
  Company Number: US-TEVA-670663USA

PATIENT
  Age: 39 Year
  Sex: Female

DRUGS (6)
  1. COPAXONE [Suspect]
     Active Substance: GLATIRAMER ACETATE
     Indication: MULTIPLE SCLEROSIS
     Dosage: 20 MILLIGRAM/MILLILITERS DAILY;
     Route: 058
     Dates: start: 20131227
  2. HCT [Concomitant]
     Active Substance: HYDROCHLOROTHIAZIDE
  3. OXYCODONE [Concomitant]
     Active Substance: OXYCODONE
  4. TOPAMAX [Concomitant]
     Active Substance: TOPIRAMATE
  5. LOSARTAN. [Concomitant]
     Active Substance: LOSARTAN
  6. ZALEPLON. [Concomitant]
     Active Substance: ZALEPLON

REACTIONS (1)
  - Fall [Unknown]

NARRATIVE: CASE EVENT DATE: 201605
